FAERS Safety Report 7630014-X (Version None)
Quarter: 2011Q3

REPORT INFORMATION
  Report Type: 
  Country: None (occurrence: None)
  Receive Date: 20110722
  Receipt Date: 20110718
  Transmission Date: 20111222
  Serious: Yes (Death)
  Sender: FDA-Public Use
  Company Number: FR-ASTRAZENECA-2011SE42994

PATIENT
  Age: 75 Year
  Sex: Male

DRUGS (8)
  1. NOREPINEPHRINE BITARTRATE [Suspect]
     Route: 042
     Dates: start: 20110608, end: 20110624
  2. METRONIDAZOLE [Suspect]
     Route: 042
     Dates: start: 20110510, end: 20110624
  3. DIPRIVAN [Suspect]
     Dosage: 1G/100ML
     Route: 042
     Dates: start: 20110608, end: 20110624
  4. PROTAMINE SULFATE [Suspect]
     Route: 042
     Dates: start: 20110608, end: 20110608
  5. EPINEPHRINE [Suspect]
     Route: 042
     Dates: start: 20110608, end: 20110620
  6. BRICANYL [Suspect]
     Dosage: 5 MG/2ML
     Route: 055
     Dates: start: 20110608, end: 20110619
  7. DOBUTAMINE HCL [Suspect]
     Route: 042
     Dates: start: 20110608, end: 20110620
  8. PANTOPRAZOLE [Suspect]
     Route: 042
     Dates: start: 20110608, end: 20110619

REACTIONS (1)
  - INTESTINAL ISCHAEMIA [None]
